FAERS Safety Report 8063942-4 (Version None)
Quarter: 2012Q1

REPORT INFORMATION
  Report Type: 
  Country: None (occurrence: None)
  Receive Date: 20120123
  Receipt Date: 20120112
  Transmission Date: 20120608
  Serious: Yes (Hospitalization, Disabling)
  Sender: FDA-Public Use
  Company Number: PHHY2012AU002631

PATIENT
  Sex: Male

DRUGS (2)
  1. CLOZARIL [Suspect]
     Dosage: 400 MG, UNK
     Route: 048
     Dates: start: 20090511, end: 20110916
  2. CLOZARIL [Suspect]
     Dosage: UNK UKN, UNK

REACTIONS (2)
  - ABNORMAL BEHAVIOUR [None]
  - MALAISE [None]
